FAERS Safety Report 11736738 (Version 1)
Quarter: 2015Q4

REPORT INFORMATION
  Report Type: Spontaneous
  Country: US (occurrence: US)
  Receive Date: 20151110
  Receipt Date: 20151110
  Transmission Date: 20160304
  Serious: No
  Sender: FDA-Public Use
  Company Number: US-ELI_LILLY_AND_COMPANY-US201203005247

PATIENT
  Age: 50 Year
  Sex: Female

DRUGS (2)
  1. FORTEO [Suspect]
     Active Substance: TERIPARATIDE
     Dosage: 20 UG, QD
     Dates: end: 201205
  2. FORTEO [Suspect]
     Active Substance: TERIPARATIDE
     Indication: OSTEOPOROSIS
     Dosage: 20 UG, QD
     Dates: start: 20111227

REACTIONS (11)
  - Intentional product misuse [Unknown]
  - Arthralgia [Unknown]
  - Fear [Unknown]
  - Adverse event [Unknown]
  - Pain [Unknown]
  - Injection site erythema [Unknown]
  - Spinal pain [Not Recovered/Not Resolved]
  - Arthralgia [Recovered/Resolved]
  - Back pain [Unknown]
  - Arthralgia [Not Recovered/Not Resolved]
  - Injection site pain [Unknown]

NARRATIVE: CASE EVENT DATE: 201202
